FAERS Safety Report 23875759 (Version 1)
Quarter: 2024Q2

REPORT INFORMATION
  Report Type: Report from Study
  Country: PH (occurrence: PH)
  Receive Date: 20240520
  Receipt Date: 20240520
  Transmission Date: 20240716
  Serious: Yes (Hospitalization)
  Sender: FDA-Public Use
  Company Number: PH-OTSUKA-2024_014144

PATIENT
  Age: 53 Year
  Sex: Female

DRUGS (4)
  1. TOLVAPTAN [Suspect]
     Active Substance: TOLVAPTAN
     Indication: Glomerular filtration rate decreased
     Dosage: 15 MG, QID (15 MG TABLET 4 TIMES A DAY)
     Route: 048
     Dates: end: 20230618
  2. TOLVAPTAN [Suspect]
     Active Substance: TOLVAPTAN
     Indication: End stage renal disease
     Dosage: UNK, BID (TWICE DAILY)
     Route: 048
  3. FERROUS SULFATE [Concomitant]
     Active Substance: FERROUS SULFATE
     Indication: Blood iron
     Dosage: UNK
     Route: 065
  4. IBETAN [Concomitant]
     Indication: Product used for unknown indication
     Dosage: UNK
     Route: 065

REACTIONS (3)
  - Dialysis [Recovering/Resolving]
  - Nephrectomy [Recovered/Resolved]
  - Product use in unapproved indication [Unknown]

NARRATIVE: CASE EVENT DATE: 20240503
